FAERS Safety Report 9635677 (Version 3)
Quarter: 2013Q4

REPORT INFORMATION
  Report Type: Spontaneous
  Country: US (occurrence: US)
  Receive Date: 20131021
  Receipt Date: 20131211
  Transmission Date: 20140711
  Serious: Yes (Other)
  Sender: FDA-Public Use
  Company Number: US-GLAXOSMITHKLINE-A1045935A

PATIENT
  Age: 74 Year
  Sex: Female

DRUGS (5)
  1. ADVAIR [Suspect]
     Indication: ASTHMA
     Dosage: 1PUFF TWICE PER DAY
     Route: 055
  2. ALLEGRA [Concomitant]
  3. TRIAMTERENE/HYDROCHLOROTHIAZIDE [Concomitant]
  4. SIMVASTATIN [Concomitant]
  5. INHALER [Concomitant]
     Route: 055

REACTIONS (7)
  - Pulmonary congestion [Not Recovered/Not Resolved]
  - Asthma [Not Recovered/Not Resolved]
  - Drug ineffective [Not Recovered/Not Resolved]
  - Dyspnoea [Not Recovered/Not Resolved]
  - Cough [Not Recovered/Not Resolved]
  - Lung disorder [Not Recovered/Not Resolved]
  - Product quality issue [Unknown]
